FAERS Safety Report 9462871 (Version 1)
Quarter: 2013Q3

REPORT INFORMATION
  Report Type: Spontaneous
  Country: JP (occurrence: None)
  Receive Date: 20130814
  Receipt Date: 20130814
  Transmission Date: 20140515
  Serious: Yes (Other)
  Sender: FDA-Public Use
  Company Number: 2010JP000401

PATIENT
  Age: 65 Year
  Sex: Female
  Weight: 52 kg

DRUGS (10)
  1. PROGRAF [Suspect]
     Indication: LUPUS NEPHRITIS
     Dosage: 3 MG, UNKNOWN/D, ORAL
     Route: 048
     Dates: start: 20070621
  2. ALFAROL [Concomitant]
  3. GLUCOBAY [Concomitant]
  4. ARTIST [Concomitant]
  5. MICARDIS [Concomitant]
  6. ACTOS [Concomitant]
  7. AMARYL [Concomitant]
  8. EUGLUCON [Concomitant]
  9. LOSARTAN POTASSIUM W/HYDROCHLOROTHIAZIDE [Concomitant]
  10. NOVORAPID [Concomitant]

REACTIONS (8)
  - Type 2 diabetes mellitus [None]
  - Upper respiratory tract inflammation [None]
  - Hypertension [None]
  - Beta 2 microglobulin urine increased [None]
  - Lacunar infarction [None]
  - Gallbladder polyp [None]
  - Concomitant disease aggravated [None]
  - Infection [None]
